FAERS Safety Report 10343928 (Version 2)
Quarter: 2014Q3

REPORT INFORMATION
  Report Type: Report from Study
  Country: NL (occurrence: NL)
  Receive Date: 20140727
  Receipt Date: 20140918
  Transmission Date: 20150326
  Serious: Yes (Death, Other)
  Sender: FDA-Public Use
  Company Number: PHHY2014NL091732

PATIENT
  Age: 78 Year
  Sex: Female

DRUGS (8)
  1. ENALAPRIL [Concomitant]
     Active Substance: ENALAPRIL
     Dosage: 10 MG, 1 DD
  2. OCTREOTID [Concomitant]
     Dosage: 100 UG, 3 DD
     Dates: start: 20140630
  3. VENLAFAXIN [Concomitant]
     Active Substance: VENLAFAXINE HYDROCHLORIDE
     Dosage: 75 + 37.5 MG, UNK
  4. SANDOSTATIN LAR DEPOT [Suspect]
     Active Substance: OCTREOTIDE ACETATE
     Indication: NEUROENDOCRINE TUMOUR
     Dosage: 20 MG PER 2 ML, ONCE PER 4 WEEK
     Route: 030
     Dates: start: 20140704
  5. VESICARE [Concomitant]
     Active Substance: SOLIFENACIN SUCCINATE
     Dosage: 10 MG, 1 DD
  6. SINEMET [Concomitant]
     Active Substance: CARBIDOPA\LEVODOPA
     Dosage: 125 MG, 3 DD
  7. DICLOFENAC [Concomitant]
     Active Substance: DICLOFENAC
     Dosage: 50 MG, 1 DD
  8. OMEPRAZOLE. [Concomitant]
     Active Substance: OMEPRAZOLE
     Dosage: 40 MG, 1 DD

REACTIONS (2)
  - Death [Fatal]
  - Pain in extremity [Unknown]

NARRATIVE: CASE EVENT DATE: 20140710
